FAERS Safety Report 22958083 (Version 2)
Quarter: 2023Q4

REPORT INFORMATION
  Report Type: Report from Study
  Country: IT (occurrence: IT)
  Receive Date: 20230919
  Receipt Date: 20231004
  Transmission Date: 20240109
  Serious: Yes (Hospitalization)
  Sender: FDA-Public Use
  Company Number: IT-009507513-2308ITA005597

PATIENT
  Age: 58 Year
  Sex: Female

DRUGS (16)
  1. CARBOPLATIN [Suspect]
     Active Substance: CARBOPLATIN
     Indication: Triple negative breast cancer
     Dosage: NEOADJUVANT THERAPY, AUC 1.5, QW
     Dates: start: 20230330, end: 20230615
  2. CARBOPLATIN [Suspect]
     Active Substance: CARBOPLATIN
     Dosage: 80 MILLIGRAM/SQ. METER
     Dates: start: 20230330, end: 20230615
  3. PACLITAXEL [Suspect]
     Active Substance: PACLITAXEL
     Indication: Triple negative breast cancer
     Dosage: 80 MILLIGRAM/SQ. METER, QW; NEOADJUVANT THERAPY
     Dates: start: 20230330, end: 20230615
  4. PEMBROLIZUMAB [Suspect]
     Active Substance: PEMBROLIZUMAB
     Indication: Triple negative breast cancer
     Dosage: 200 MILLIGRAM, Q3W
     Dates: start: 20230330
  5. PEMBROLIZUMAB [Suspect]
     Active Substance: PEMBROLIZUMAB
     Dosage: 200 MILLIGRAM, Q3W
     Dates: start: 20230727, end: 20230727
  6. EPIRUBICIN HYDROCHLORIDE [Suspect]
     Active Substance: EPIRUBICIN HYDROCHLORIDE
     Indication: Triple negative breast cancer
     Dosage: 80 MG/M2, EVERY 3 WEEKS
     Dates: start: 20230629, end: 20230727
  7. CYCLOPHOSPHAMIDE [Suspect]
     Active Substance: CYCLOPHOSPHAMIDE
     Indication: Triple negative breast cancer
     Dosage: 796 MG, EVERY 3 WEEKS EC90 SCHEME
     Dates: start: 20230629, end: 20230727
  8. PANTOPRAZOLE [Concomitant]
     Active Substance: PANTOPRAZOLE
     Indication: Prophylaxis
     Dosage: 40 MG, QD
     Route: 048
  9. INSULIN GLARGINE [Concomitant]
     Active Substance: INSULIN GLARGINE
     Indication: Diabetes mellitus management
     Dosage: 14 IU, QD AS NEEDED
     Route: 058
     Dates: start: 202308
  10. CANDESARTAN [Concomitant]
     Active Substance: CANDESARTAN
     Indication: Hypertension
     Dosage: 8 MG, 1X/DAY
     Route: 048
  11. INSULIN GLULISINE [Concomitant]
     Active Substance: INSULIN GLULISINE
     Indication: Diabetes mellitus management
     Dosage: 8IUX2+6IU TOTAL DAILY DOSE 22IU||TID
     Route: 058
     Dates: start: 202308
  12. METFORMIN HYDROCHLORIDE [Concomitant]
     Active Substance: METFORMIN HYDROCHLORIDE
     Indication: Diabetes mellitus management
     Dosage: 500+850X2MG. TOTAL DAILY DOSE 2200 MG.||TID
     Route: 048
     Dates: start: 202308
  13. BISOPROLOL [Concomitant]
     Active Substance: BISOPROLOL\BISOPROLOL FUMARATE
     Indication: Hypertension
     Dosage: 1.25 MG, 1X/DAY
     Route: 048
  14. PREDNISONE [Concomitant]
     Active Substance: PREDNISONE
     Indication: Pneumonia
     Dosage: 25 MG, 1X/DAY
     Route: 048
     Dates: start: 202308
  15. ZOLPIDEM [Concomitant]
     Active Substance: ZOLPIDEM TARTRATE
     Indication: Insomnia
     Dosage: 10 MG, AS NEEDED
     Route: 048
     Dates: start: 202308
  16. DIHYDROCODEINE\PENTETRAZOL [Concomitant]
     Active Substance: DIHYDROCODEINE\PENTETRAZOL
     Indication: Cough
     Dosage: 40 DROPS TOTAL DAILY DOSE||BID
     Route: 048
     Dates: start: 202308

REACTIONS (4)
  - Vomiting [Not Recovered/Not Resolved]
  - Decreased appetite [Not Recovered/Not Resolved]
  - Pneumonia [Recovered/Resolved]
  - Pyrexia [Not Recovered/Not Resolved]

NARRATIVE: CASE EVENT DATE: 20230806
